FAERS Safety Report 7739630-8 (Version None)
Quarter: 2011Q3

REPORT INFORMATION
  Report Type: 
  Country: None (occurrence: None)
  Receive Date: 20110909
  Receipt Date: 20110825
  Transmission Date: 20111222
  Serious: Yes (Hospitalization, Other)
  Sender: FDA-Public Use
  Company Number: IL-WATSON-2011-14259

PATIENT
  Age: 60 Year
  Sex: Female

DRUGS (1)
  1. METFORMIN HCL [Suspect]
     Indication: DIABETES MELLITUS
     Dosage: 850 MG, NOT TAKEN CONSISTENTLY

REACTIONS (2)
  - TREATMENT NONCOMPLIANCE [None]
  - LEUKOCYTOCLASTIC VASCULITIS [None]
